FAERS Safety Report 4840568-4 (Version None)
Quarter: 2005Q4

REPORT INFORMATION
  Report Type: 
  Country: None (occurrence: None)
  Receive Date: 20051130
  Receipt Date: 20051019
  Transmission Date: 20060501
  Serious: Yes (Other)
  Sender: FDA-Public Use
  Company Number: US-BRISTOL-MYERS SQUIBB COMPANY-13150479

PATIENT
  Age: 70 Year
  Sex: Male
  Weight: 93 kg

DRUGS (10)
  1. ERBITUX [Suspect]
     Indication: COLON CANCER METASTATIC
     Dosage: 1ST DOSE 800 MG AT 200 CC/HR RCVD 71 CCS.; RE-STARTED AT 100 CC/HR AND RCVD 38 CC'S OF THE INFUSION.
     Route: 042
     Dates: start: 20051019, end: 20051019
  2. BENADRYL [Concomitant]
     Indication: PREMEDICATION
     Dosage: ADMINISTERED 30 MINUTES BEFORE CETUXIMAB.
     Route: 042
     Dates: start: 20051019, end: 20051019
  3. ALPHAGAN [Concomitant]
     Dosage: 1 DROP BOTH EYES.
     Route: 047
  4. CAMPTOSAR [Concomitant]
  5. CARDURA [Concomitant]
     Dosage: FOR YEARS.
  6. COUMADIN [Concomitant]
     Dosage: 5 MG AND 7.5 MG.
  7. DILTIAZEM HCL [Concomitant]
  8. LUMIGAN [Concomitant]
     Dosage: 1 DROP BOTH EYES.
     Route: 047
  9. PAXIL [Concomitant]
  10. PERCOCET [Concomitant]
     Dosage: 5/325.  ONE TABLET DAILY AS NEEDED.

REACTIONS (1)
  - INFUSION RELATED REACTION [None]
